FAERS Safety Report 20641080 (Version 2)
Quarter: 2022Q2

REPORT INFORMATION
  Report Type: Spontaneous
  Country: DE (occurrence: DE)
  Receive Date: 20220327
  Receipt Date: 20220419
  Transmission Date: 20220721
  Serious: Yes (Other)
  Sender: FDA-Public Use
  Company Number: DE-KRKA-AT2022K02737SPO

PATIENT
  Age: 42 Year
  Sex: Female
  Weight: 61 kg

DRUGS (8)
  1. NEUPRO [Interacting]
     Active Substance: ROTIGOTINE
     Indication: Paraesthesia
     Dosage: 2 MILLIGRAM, ONCE DAILY (QD)
     Route: 062
     Dates: start: 202111, end: 202111
  2. NEUPRO [Interacting]
     Active Substance: ROTIGOTINE
     Indication: Restless legs syndrome
     Dosage: 2 MILLIGRAM, ONCE DAILY (QD)
     Route: 062
     Dates: start: 20220114, end: 20220116
  3. COMIRNATY [Suspect]
     Active Substance: TOZINAMERAN
     Indication: COVID-19
     Dosage: UNK, SINGLE DOSE
     Dates: start: 20220101, end: 20220101
  4. COMIRNATY [Suspect]
     Active Substance: TOZINAMERAN
     Indication: Prophylaxis
  5. LAMOTRIGINE [Interacting]
     Active Substance: LAMOTRIGINE
     Indication: Epilepsy
     Dosage: 100 MG, 2X PER DAY
     Route: 048
  6. LEVETIRACETAM [Interacting]
     Active Substance: LEVETIRACETAM
     Indication: Epilepsy
     Dosage: 500 MG, 2X PER DAY
     Route: 048
  7. MIRENA [Concomitant]
     Active Substance: LEVONORGESTREL
     Indication: Contraception
     Dosage: UNK
  8. COVID-19 VACCINE [Concomitant]
     Indication: Immunisation
     Dosage: UNK

REACTIONS (7)
  - Nausea [Unknown]
  - Paraesthesia [Unknown]
  - Epilepsy [Unknown]
  - Drug interaction [Unknown]
  - Drug ineffective [Unknown]
  - COVID-19 immunisation [Unknown]
  - Product use in unapproved indication [Unknown]

NARRATIVE: CASE EVENT DATE: 20211101
